FAERS Safety Report 7190342-1 (Version None)
Quarter: 2010Q4

REPORT INFORMATION
  Report Type: 
  Country: None (occurrence: None)
  Receive Date: 20101221
  Receipt Date: 20101221
  Transmission Date: 20110411
  Serious: No
  Sender: FDA-Public Use
  Company Number: None

PATIENT
  Age: 5 Year
  Sex: Female
  Weight: 33.1126 kg

DRUGS (1)
  1. FOCALIN [Suspect]
     Indication: ATTENTION DEFICIT/HYPERACTIVITY DISORDER
     Dosage: 5 MG QAM PO
     Route: 048
     Dates: start: 20101110

REACTIONS (3)
  - ERYTHEMA [None]
  - RASH GENERALISED [None]
  - RASH MACULO-PAPULAR [None]
